FAERS Safety Report 6456744-3 (Version None)
Quarter: 2009Q4

REPORT INFORMATION
  Report Type: 
  Country: None (occurrence: None)
  Receive Date: 20091124
  Receipt Date: 20091124
  Transmission Date: 20100525
  Serious: Yes (Hospitalization)
  Sender: FDA-Public Use
  Company Number: None

PATIENT
  Age: 61 Year
  Sex: Female
  Weight: 105 kg

DRUGS (5)
  1. KETOROLAC TROMETHAMINE [Suspect]
     Indication: PROCEDURAL PAIN
     Dosage: 15 MG Q8H IV
     Route: 042
     Dates: start: 20091109, end: 20091110
  2. FUROSEMIDE [Suspect]
     Indication: URINE OUTPUT DECREASED
     Dosage: 40 MG Q6H X 2 DOSES IV
     Route: 042
     Dates: start: 20091110, end: 20091110
  3. ENOXAPARIN SODIUM [Concomitant]
  4. TERAZOSIN HCL [Concomitant]
  5. VERAPAMIL [Concomitant]

REACTIONS (2)
  - AZOTAEMIA [None]
  - RENAL TUBULAR NECROSIS [None]
